FAERS Safety Report 20970409 (Version 1)
Quarter: 2022Q2

REPORT INFORMATION
  Report Type: Spontaneous
  Country: US (occurrence: US)
  Receive Date: 20220616
  Receipt Date: 20220616
  Transmission Date: 20220720
  Serious: No
  Sender: FDA-Public Use
  Company Number: US-SA-SAC20220606000615

PATIENT
  Sex: Female

DRUGS (3)
  1. DUPIXENT [Suspect]
     Active Substance: DUPILUMAB
     Indication: Dermatitis atopic
     Route: 058
     Dates: start: 20211228
  2. CLOBETASOL [Concomitant]
     Active Substance: CLOBETASOL
  3. PROTOPIC [Concomitant]
     Active Substance: TACROLIMUS

REACTIONS (1)
  - Drug ineffective [Unknown]
